FAERS Safety Report 7607880-7 (Version None)
Quarter: 2011Q3

REPORT INFORMATION
  Report Type: 
  Country: None (occurrence: None)
  Receive Date: 20110714
  Receipt Date: 20110706
  Transmission Date: 20111222
  Serious: No
  Sender: FDA-Public Use
  Company Number: US-BIOGENIDEC-2011BI009395

PATIENT
  Age: 55 Year
  Sex: Female

DRUGS (1)
  1. TYSABRI [Suspect]
     Indication: MULTIPLE SCLEROSIS
     Route: 042
     Dates: start: 20080104

REACTIONS (7)
  - PRURITUS [None]
  - NEPHROLITHIASIS [None]
  - BLOOD URINE PRESENT [None]
  - BACK PAIN [None]
  - CYSTITIS [None]
  - LICHEN PLANUS [None]
  - VAGINAL DISCHARGE [None]
